FAERS Safety Report 4634933-8 (Version None)
Quarter: 2005Q2

REPORT INFORMATION
  Report Type: 
  Country: None (occurrence: None)
  Receive Date: 20050412
  Receipt Date: 20050328
  Transmission Date: 20051028
  Serious: Yes (Life-Threatening)
  Sender: FDA-Public Use
  Company Number: DSA_26125_2005

PATIENT
  Age: 55 Year
  Sex: Male

DRUGS (6)
  1. TAVOR [Suspect]
     Dosage: 3 MG
     Dates: start: 20010102, end: 20010209
  2. AMITRIPTYLINE HYDROCHLORIDE [Suspect]
     Indication: DEPRESSION
     Dates: start: 20010129, end: 20010209
  3. ANTRA [Suspect]
     Dosage: 20 MG
     Dates: start: 20010102, end: 20010209
  4. ZOLPIDEM TARTRATE [Suspect]
     Dosage: DF DAILY PO
     Route: 048
     Dates: start: 20010102, end: 20010209
  5. SEROQUEL [Suspect]
     Dosage: 200 MG
     Dates: start: 20010206, end: 20010209
  6. PLANTOCUR [Concomitant]

REACTIONS (10)
  - APNOEA [None]
  - ARRHYTHMIA [None]
  - ATRIAL FIBRILLATION [None]
  - CARDIAC ARREST [None]
  - CHEST PAIN [None]
  - CIRCULATORY COLLAPSE [None]
  - CONDUCTION DISORDER [None]
  - CORONARY ARTERY STENOSIS [None]
  - DELIRIUM [None]
  - VENTRICULAR FLUTTER [None]
